FAERS Safety Report 5189802-4 (Version None)
Quarter: 2006Q4

REPORT INFORMATION
  Report Type: 
  Country: None (occurrence: None)
  Receive Date: 20061218
  Receipt Date: 20061206
  Transmission Date: 20070319
  Serious: Yes (Hospitalization)
  Sender: FDA-Public Use
  Company Number: 1-14369601/MED-06206

PATIENT
  Age: 47 Year
  Sex: Female

DRUGS (7)
  1. BACTRIM [Suspect]
     Dosage: ORAL
     Route: 048
     Dates: end: 20061020
  2. TEMODAR [Suspect]
     Indication: GLIOBLASTOMA MULTIFORME
     Dates: start: 20060829, end: 20060925
  3. RADIATION THERAPY [Concomitant]
  4. NEULASTA [Concomitant]
  5. DIFLUCAN [Concomitant]
  6. VALTREX [Concomitant]
  7. UNSPECIFIED IV ANTIBIOTICS [Concomitant]

REACTIONS (3)
  - HAEMORRHOIDS [None]
  - PLATELET COUNT DECREASED [None]
  - WHITE BLOOD CELL COUNT DECREASED [None]
